FAERS Safety Report 6059526-X (Version None)
Quarter: 2009Q1

REPORT INFORMATION
  Report Type: 
  Country: None (occurrence: None)
  Receive Date: 20090130
  Receipt Date: 20090123
  Transmission Date: 20090719
  Serious: Yes (Hospitalization)
  Sender: FDA-Public Use
  Company Number: IN-ELI_LILLY_AND_COMPANY-IN200901001819

PATIENT
  Sex: Male

DRUGS (1)
  1. HUMULIN R [Suspect]
     Dosage: UNK, UNK
     Dates: end: 20090101

REACTIONS (2)
  - INJECTION SITE RASH [None]
  - RASH [None]
